FAERS Safety Report 10529790 (Version 1)
Quarter: 2014Q4

REPORT INFORMATION
  Report Type: Spontaneous
  Country: US (occurrence: None)
  Receive Date: 20141020
  Receipt Date: 20141020
  Transmission Date: 20150528
  Serious: Yes (Other)
  Sender: FDA-Public Use
  Company Number: None

PATIENT
  Age: 76 Year
  Sex: Female
  Weight: 49.44 kg

DRUGS (7)
  1. PROLIA [Suspect]
     Active Substance: DENOSUMAB
     Indication: BONE LOSS
     Dates: start: 20131030, end: 20140430
  2. MEGA RED [Concomitant]
  3. ESCITALOPRAM [Concomitant]
     Active Substance: ESCITALOPRAM OXALATE
  4. Q10 [Concomitant]
  5. FISH OIL [Concomitant]
     Active Substance: FISH OIL
  6. LIVALO [Concomitant]
     Active Substance: PITAVASTATIN CALCIUM
  7. VIT. D [Concomitant]

REACTIONS (12)
  - Hair colour changes [None]
  - Flatulence [None]
  - Toothache [None]
  - Head discomfort [None]
  - Myalgia [None]
  - Bone pain [None]
  - Urinary incontinence [None]
  - Headache [None]
  - Faecal incontinence [None]
  - Pruritus [None]
  - Abdominal pain upper [None]
  - Pain in jaw [None]

NARRATIVE: CASE EVENT DATE: 201412
